FAERS Safety Report 8935640 (Version 1)
Quarter: 2012Q4

REPORT INFORMATION
  Report Type: 
  Country: ES (occurrence: ES)
  Receive Date: 20121130
  Receipt Date: 20121130
  Transmission Date: 20130627
  Serious: Yes (Hospitalization, Other)
  Sender: FDA-Public Use
  Company Number: ES-JNJFOC-20110310808

PATIENT
  Age: 31 Year
  Sex: Female
  Weight: 85 kg

DRUGS (5)
  1. USTEKINUMAB [Suspect]
     Indication: PSORIASIS
     Route: 058
     Dates: start: 20100308
  2. METILDOPA [Suspect]
     Indication: HYPERTENSION
     Route: 065
     Dates: start: 20110612
  3. OXYTOCIN [Suspect]
     Indication: PRODUCT USED FOR UNKNOWN INDICATION
     Route: 042
     Dates: start: 20111022
  4. LABETALOL [Suspect]
     Indication: HYPERTENSION
     Route: 048
     Dates: start: 20111021
  5. FOLIC ACID [Concomitant]
     Indication: PRODUCT USED FOR UNKNOWN INDICATION
     Route: 065

REACTIONS (3)
  - Diabetes mellitus [Unknown]
  - Hypertensive crisis [Unknown]
  - Exposure during pregnancy [Recovered/Resolved]
